FAERS Safety Report 4286807-2 (Version None)
Quarter: 2004Q1

REPORT INFORMATION
  Report Type: 
  Country: None (occurrence: None)
  Receive Date: 20040204
  Receipt Date: 20040121
  Transmission Date: 20041129
  Serious: Yes (Hospitalization)
  Sender: FDA-Public Use
  Company Number: US065289

PATIENT
  Age: 58 Year
  Sex: Female

DRUGS (9)
  1. ENBREL [Suspect]
     Indication: RHEUMATOID ARTHRITIS
     Dosage: 25 MG, 2 IN 1 WEEKS, SC
     Route: 058
     Dates: start: 20030612, end: 20030912
  2. KETOPROFEN [Suspect]
     Dosage: 200 MG, 1 IN 1 DAYS, PO
     Route: 048
  3. CHLORAMPHENICOL [Concomitant]
  4. APOREX [Concomitant]
  5. FUROSEMIDE [Concomitant]
  6. DILTIAZEM HYDROCHLORIDE [Concomitant]
  7. SIMVASTATIN [Concomitant]
  8. OMEPRAZOLE [Concomitant]
  9. ISOSORBIDE [Concomitant]

REACTIONS (4)
  - ANGIONEUROTIC OEDEMA [None]
  - DYSPNOEA [None]
  - EYE IRRITATION [None]
  - FLUID RETENTION [None]
